FAERS Safety Report 8779622 (Version 2)
Quarter: 2018Q4

REPORT INFORMATION
  Report Type: Spontaneous
  Country: FR (occurrence: FR)
  Receive Date: 20120911
  Receipt Date: 20181106
  Transmission Date: 20190205
  Serious: Yes (Other)
  Sender: FDA-Public Use
  Company Number: FR-SANOFI-AVENTIS-2012SA065000

PATIENT
  Age: 77 Year
  Sex: Female

DRUGS (4)
  1. DEPAKOTE [Suspect]
     Active Substance: DIVALPROEX SODIUM
     Indication: PSYCHIATRIC DECOMPENSATION
     Dosage: 750 MG,QD
     Route: 048
     Dates: start: 20120723
  2. LOVENOX [Suspect]
     Active Substance: ENOXAPARIN SODIUM
     Indication: DEEP VEIN THROMBOSIS
     Dosage: UNK UNK,UNK
     Route: 058
     Dates: start: 20120719
  3. ZYPREXA [Concomitant]
     Active Substance: OLANZAPINE
     Dosage: 20 MG,QD
     Route: 048
     Dates: start: 2003
  4. WARFARIN SODIUM. [Suspect]
     Active Substance: WARFARIN SODIUM
     Indication: DEEP VEIN THROMBOSIS
     Dosage: 6 MG,QD
     Route: 048
     Dates: start: 20120719

REACTIONS (1)
  - Neutropenia [Recovered/Resolved]

NARRATIVE: CASE EVENT DATE: 20120723
